FAERS Safety Report 7580626-7 (Version None)
Quarter: 2011Q2

REPORT INFORMATION
  Report Type: 
  Country: None (occurrence: None)
  Receive Date: 20110629
  Receipt Date: 20110614
  Transmission Date: 20111010
  Serious: Yes (Hospitalization)
  Sender: FDA-Public Use
  Company Number: DE-ALEXION-A201100876

PATIENT
  Sex: Female

DRUGS (5)
  1. BAYOTENSIN AKUT [Concomitant]
     Indication: HYPERTENSION
  2. SOLIRIS [Suspect]
     Indication: HAEMOLYTIC URAEMIC SYNDROME
     Dosage: 900 MG UNK
     Route: 042
     Dates: start: 20110531, end: 20110614
  3. CLONIDINE HCL [Concomitant]
     Indication: HYPERTENSION
     Route: 058
  4. NOVALGINE [Concomitant]
  5. METOCLOPRAMIDE [Concomitant]

REACTIONS (4)
  - ANGIOEDEMA [None]
  - HEADACHE [None]
  - INFUSION RELATED REACTION [None]
  - NAUSEA [None]
